FAERS Safety Report 4810135-7 (Version None)
Quarter: 2005Q4

REPORT INFORMATION
  Report Type: 
  Country: None (occurrence: None)
  Receive Date: 20051024
  Receipt Date: 20051024
  Transmission Date: 20060501
  Serious: Yes (Hospitalization, Other)
  Sender: FDA-Public Use
  Company Number: None

PATIENT
  Sex: Female
  Weight: 70 kg

DRUGS (2)
  1. CISPLATIN [Suspect]
     Indication: SMALL CELL LUNG CANCER STAGE UNSPECIFIED
     Dosage: SEE IMAGE
     Dates: start: 20050927, end: 20050927
  2. ETOPOSIDE [Suspect]
     Dosage: SEE IMAGE
     Dates: start: 20050927, end: 20050929

REACTIONS (9)
  - DEHYDRATION [None]
  - DYSPHAGIA [None]
  - NAUSEA [None]
  - ORAL INTAKE REDUCED [None]
  - ORAL PAIN [None]
  - PHARYNGEAL OEDEMA [None]
  - PYELONEPHRITIS [None]
  - URINARY TRACT INFECTION [None]
  - VOMITING [None]
